FAERS Safety Report 18218991 (Version 2)
Quarter: 2020Q4

REPORT INFORMATION
  Report Type: Spontaneous
  Country: PT (occurrence: PT)
  Receive Date: 20200901
  Receipt Date: 20201127
  Transmission Date: 20210113
  Serious: Yes (Other)
  Sender: FDA-Public Use
  Company Number: PT-SAMSUNG BIOEPIS-SB-2020-26852

PATIENT
  Age: 15 Year
  Sex: Female

DRUGS (4)
  1. AZATHIOPRINE. [Suspect]
     Active Substance: AZATHIOPRINE
     Indication: TUBERCULOSIS
     Dosage: UNKNOWN
     Route: 065
  2. ADALIMUMAB [Suspect]
     Active Substance: ADALIMUMAB
     Indication: PSORIASIS
     Dosage: UNKNOWN
     Route: 065
  3. METRONIDAZOLE. [Suspect]
     Active Substance: METRONIDAZOLE
     Indication: TUBERCULOSIS
     Dosage: UNKNOWN
     Route: 065
  4. CIPROFLOXACIN. [Suspect]
     Active Substance: CIPROFLOXACIN
     Indication: TUBERCULOSIS
     Dosage: UNKNOWN
     Route: 065

REACTIONS (8)
  - Drug ineffective [Unknown]
  - Product use in unapproved indication [Unknown]
  - Oral disorder [Unknown]
  - Condition aggravated [Unknown]
  - Wound infection [Unknown]
  - Infection [Unknown]
  - Psoriasis [Unknown]
  - Vaginal lesion [Unknown]
